FAERS Safety Report 5371060-9 (Version None)
Quarter: 2007Q2

REPORT INFORMATION
  Report Type: 
  Country: None (occurrence: None)
  Receive Date: 20070622
  Receipt Date: 20070615
  Transmission Date: 20071010
  Serious: Yes (Hospitalization)
  Sender: FDA-Public Use
  Company Number: 2007SP007427

PATIENT
  Age: 49 Year
  Sex: Male
  Weight: 70 kg

DRUGS (4)
  1. PEG-INTRON [Suspect]
     Indication: HEPATITIS C
     Dosage: 100 MCG; QW; SC
     Route: 058
     Dates: start: 20060412, end: 20060929
  2. REBETOL [Suspect]
     Indication: HEPATITIS C
     Dosage: 800 MG; PO
     Route: 048
     Dates: start: 20060412, end: 20060929
  3. LOXONIN [Concomitant]
  4. CYTOTEC [Concomitant]

REACTIONS (4)
  - ABDOMINAL ABSCESS [None]
  - GASTRIC ULCER [None]
  - GASTRIC ULCER PERFORATION [None]
  - INFECTION IN AN IMMUNOCOMPROMISED HOST [None]
